FAERS Safety Report 5008111-7 (Version None)
Quarter: 2006Q2

REPORT INFORMATION
  Report Type: 
  Country: None (occurrence: None)
  Receive Date: 20060404
  Receipt Date: 20050817
  Transmission Date: 20061013
  Serious: Yes (Other)
  Sender: FDA-Public Use
  Company Number: 2005100538

PATIENT
  Age: 29 Year
  Sex: Female

DRUGS (4)
  1. GEODON [Suspect]
     Indication: SCHIZOAFFECTIVE DISORDER
     Dosage: 160 MG (1 IN 1 D),
  2. COGENTIN [Suspect]
     Indication: MUSCLE TWITCHING
  3. KLONOPIN [Concomitant]
  4. PROVIGIL [Concomitant]

REACTIONS (5)
  - ADVERSE EVENT [None]
  - DYSTONIA [None]
  - EMOTIONAL DISTRESS [None]
  - MUSCLE TWITCHING [None]
  - OCULOGYRATION [None]
